FAERS Safety Report 23458180 (Version 2)
Quarter: 2024Q1

REPORT INFORMATION
  Report Type: Spontaneous
  Country: US (occurrence: US)
  Receive Date: 20240130
  Receipt Date: 20240221
  Transmission Date: 20240409
  Serious: No
  Sender: FDA-Public Use
  Company Number: US-PFIZER INC-202400026104

PATIENT
  Age: 44 Year
  Sex: Female
  Weight: 70.295 kg

DRUGS (1)
  1. PAXLOVID [Suspect]
     Active Substance: NIRMATRELVIR\RITONAVIR
     Indication: COVID-19 treatment
     Dosage: [NIRMATRELVIR 300 MG]/[RITONAVIR 100 MG], 2X/DAY
     Route: 048
     Dates: start: 20240125

REACTIONS (7)
  - Tongue blistering [Unknown]
  - Blister [Unknown]
  - Oral mucosal blistering [Unknown]
  - Chest pain [Unknown]
  - Feeling abnormal [Unknown]
  - Malaise [Unknown]
  - Rash [Unknown]

NARRATIVE: CASE EVENT DATE: 20240126
